FAERS Safety Report 6386962-4 (Version None)
Quarter: 2009Q4

REPORT INFORMATION
  Report Type: 
  Country: None (occurrence: None)
  Receive Date: 20091002
  Receipt Date: 20090925
  Transmission Date: 20100525
  Serious: Yes (Death)
  Sender: FDA-Public Use
  Company Number: US-ELI_LILLY_AND_COMPANY-US200909006125

PATIENT
  Age: 77 Year
  Sex: Male

DRUGS (7)
  1. ADCIRCA [Suspect]
     Indication: PULMONARY HYPERTENSION
     Dosage: 40 MG, DAILY (1/D)
  2. DIGOXIN [Concomitant]
  3. COUMADIN [Concomitant]
  4. FUROSEMIDE [Concomitant]
  5. PEPCID [Concomitant]
  6. ASPIRIN [Concomitant]
  7. STADOL [Concomitant]

REACTIONS (1)
  - DEATH [None]
